FAERS Safety Report 7910654-0 (Version None)
Quarter: 2011Q4

REPORT INFORMATION
  Report Type: 
  Country: None (occurrence: None)
  Receive Date: 20111111
  Receipt Date: 20111107
  Transmission Date: 20120403
  Serious: Yes (Death, Other)
  Sender: FDA-Public Use
  Company Number: PHHY2011CA099088

PATIENT
  Age: 15 Month
  Sex: Male

DRUGS (8)
  1. VINCRISTINE [Suspect]
     Indication: CHEMOTHERAPY
     Dosage: 0.065 MG/KG, UNK
  2. ETOPOSIDE [Suspect]
     Indication: CHEMOTHERAPY
     Dosage: 2.5 MG/KG/DAY
  3. RADIOTHERAPY [Suspect]
     Dosage: 50.4 GY, UNK
  4. THIOTEPA [Suspect]
     Indication: CHEMOTHERAPY
  5. CISPLATIN [Suspect]
     Dosage: 3.5 MG/KG, UNK
  6. METHOTREXATE [Suspect]
     Indication: CHEMOTHERAPY
     Dosage: 8 MG/M2, UNK
  7. CARBOPLATIN [Suspect]
     Indication: CHEMOTHERAPY
  8. CYCLOPHOSPHAMIDE [Suspect]
     Indication: CHEMOTHERAPY
     Dosage: 0.05 MG/KG/DAY

REACTIONS (4)
  - DEATH [None]
  - CENTRAL NERVOUS SYSTEM LESION [None]
  - METASTATIC NEOPLASM [None]
  - DYSPHAGIA [None]
